FAERS Safety Report 8266645-6 (Version None)
Quarter: 2012Q2

REPORT INFORMATION
  Report Type: 
  Country: None (occurrence: None)
  Receive Date: 20120407
  Receipt Date: 20120328
  Transmission Date: 20120825
  Serious: Yes (Hospitalization, Other)
  Sender: FDA-Public Use
  Company Number: US-ASTRAZENECA-2011SE09424

PATIENT
  Age: 67 Year
  Sex: Female

DRUGS (15)
  1. SEROQUEL XR [Suspect]
     Route: 048
  2. LITHIUM CARBONATE [Concomitant]
  3. SEROQUEL XR [Suspect]
     Indication: MENTAL DISORDER
     Route: 048
  4. SEROQUEL XR [Suspect]
     Route: 048
  5. ADDERALL 5 [Concomitant]
  6. SEROQUEL XR [Suspect]
     Indication: MANIA
     Route: 048
  7. SEROQUEL XR [Suspect]
     Route: 048
  8. SEROQUEL XR [Suspect]
     Route: 048
  9. SEROQUEL XR [Suspect]
     Route: 048
  10. SEROQUEL XR [Suspect]
     Route: 048
  11. SEROQUEL XR [Suspect]
     Indication: BIPOLAR DISORDER
     Route: 048
  12. SEROQUEL XR [Suspect]
     Route: 048
  13. MOOD STABILIZERS [Concomitant]
  14. SEROQUEL XR [Suspect]
     Route: 048
  15. SEROQUEL XR [Suspect]
     Route: 048

REACTIONS (11)
  - FALL [None]
  - MALAISE [None]
  - BRONCHITIS CHRONIC [None]
  - MULTIPLE FRACTURES [None]
  - CONDITION AGGRAVATED [None]
  - HUNGER [None]
  - DRY MOUTH [None]
  - THERAPEUTIC RESPONSE UNEXPECTED [None]
  - DYSKINESIA [None]
  - HIP FRACTURE [None]
  - STRESS [None]
